FAERS Safety Report 23579154 (Version 1)
Quarter: 2024Q1

REPORT INFORMATION
  Report Type: Spontaneous
  Country: GB (occurrence: GB)
  Receive Date: 20240229
  Receipt Date: 20240229
  Transmission Date: 20240410
  Serious: Yes (Other)
  Sender: FDA-Public Use
  Company Number: GB-GILEAD-2024-0663061

PATIENT
  Age: 47 Year
  Sex: Female

DRUGS (1)
  1. TRODELVY [Suspect]
     Active Substance: SACITUZUMAB GOVITECAN-HZIY
     Indication: Breast cancer
     Dosage: 10 MG/KG
     Route: 065
     Dates: start: 20221124, end: 20231108

REACTIONS (4)
  - Disease progression [Unknown]
  - Mouth ulceration [Unknown]
  - Fatigue [Unknown]
  - Diarrhoea [Unknown]
